FAERS Safety Report 19774518 (Version 1)
Quarter: 2021Q3

REPORT INFORMATION
  Report Type: Spontaneous
  Country: US (occurrence: US)
  Receive Date: 20210901
  Receipt Date: 20210901
  Transmission Date: 20211014
  Serious: No
  Sender: FDA-Public Use
  Company Number: US-THERAPEUTICSMD-2021TMD01773

PATIENT
  Sex: Female

DRUGS (2)
  1. ANNOVERA [Suspect]
     Active Substance: ETHINYL ESTRADIOL\SEGESTERONE ACETATE
     Dosage: 1 VAGINAL RING, KEPT IN
     Route: 067
     Dates: start: 202103
  2. REFRESH THE 2 IN 1 PH BALANCE [Concomitant]
     Dosage: UNK, DOUCHE AND A GEL, 1X/WEEK

REACTIONS (3)
  - Asthenia [Not Recovered/Not Resolved]
  - Off label use [Not Recovered/Not Resolved]
  - Device expulsion [Unknown]

NARRATIVE: CASE EVENT DATE: 2021
